FAERS Safety Report 8210962-2 (Version None)
Quarter: 2012Q1

REPORT INFORMATION
  Report Type: 
  Country: None (occurrence: None)
  Receive Date: 20120315
  Receipt Date: 20120312
  Transmission Date: 20120608
  Serious: Yes (Death)
  Sender: FDA-Public Use
  Company Number: US-CELGENEUS-163-21880-12031346

PATIENT
  Sex: Male
  Weight: 93.978 kg

DRUGS (9)
  1. REVLIMID [Suspect]
     Indication: MULTIPLE MYELOMA
     Dosage: 25 MILLIGRAM
     Route: 048
     Dates: start: 20120215
  2. FENOFIBRATE [Concomitant]
     Dosage: 54 MILLIGRAM
     Route: 065
  3. METOPROLOL SUCCINATE [Concomitant]
     Route: 065
  4. LACTULOSE [Concomitant]
     Dosage: 30 GRAM
     Route: 065
  5. LISINOPRIL [Concomitant]
     Dosage: 2.5 MILLIGRAM
     Route: 065
  6. SYNTHROID [Concomitant]
     Dosage: 25 MILLIGRAM
     Route: 065
  7. SIMVASTATIN [Concomitant]
     Dosage: 40 MILLIGRAM
     Route: 065
  8. DULCOLAX [Concomitant]
     Dosage: 10 MILLIGRAM
     Route: 065
  9. SENOKOT [Concomitant]
     Dosage: 8.6 MILLIGRAM
     Route: 065

REACTIONS (1)
  - DEATH [None]
